FAERS Safety Report 22173083 (Version 1)
Quarter: 2023Q2

REPORT INFORMATION
  Report Type: Report from Study
  Country: BE (occurrence: BE)
  Receive Date: 20230404
  Receipt Date: 20230404
  Transmission Date: 20230722
  Serious: Yes (Hospitalization, Other)
  Sender: FDA-Public Use
  Company Number: BE-VER-202300001

PATIENT
  Age: 54 Year
  Sex: Male

DRUGS (5)
  1. TRIPTORELIN [Suspect]
     Active Substance: TRIPTORELIN
     Indication: Salivary gland cancer
     Route: 065
  2. TRIPTORELIN [Suspect]
     Active Substance: TRIPTORELIN
     Indication: Salivary gland cancer
     Route: 030
     Dates: start: 20180711, end: 20230215
  3. PACLITAXEL [Suspect]
     Active Substance: PACLITAXEL
     Indication: Salivary gland cancer
     Route: 042
     Dates: start: 20170628, end: 20171011
  4. CARBOPLATIN [Suspect]
     Active Substance: CARBOPLATIN
     Indication: Salivary gland cancer
     Route: 042
     Dates: start: 20170628, end: 20171011
  5. BICALUTAMIDE [Suspect]
     Active Substance: BICALUTAMIDE
     Indication: Salivary gland cancer
     Route: 048
     Dates: start: 20180704, end: 20230308

REACTIONS (1)
  - Pulmonary resection [Unknown]

NARRATIVE: CASE EVENT DATE: 20230308
